FAERS Safety Report 8615843-8 (Version None)
Quarter: 2012Q3

REPORT INFORMATION
  Report Type: 
  Country: None (occurrence: None)
  Receive Date: 20120823
  Receipt Date: 20120815
  Transmission Date: 20120928
  Serious: Yes (Other)
  Sender: FDA-Public Use
  Company Number: US-ROCHE-735443

PATIENT
  Sex: Male
  Weight: 86.2 kg

DRUGS (2)
  1. ACCUTANE [Suspect]
     Route: 065
  2. ACCUTANE [Suspect]
     Indication: ACNE
     Route: 065
     Dates: start: 19890101, end: 19920101

REACTIONS (9)
  - COLITIS ULCERATIVE [None]
  - ABDOMINAL PAIN [None]
  - HAEMORRHOIDS [None]
  - NAUSEA [None]
  - IRRITABLE BOWEL SYNDROME [None]
  - BLOOD ALKALINE PHOSPHATASE INCREASED [None]
  - INFLAMMATORY BOWEL DISEASE [None]
  - RECTAL POLYP [None]
  - RECTAL HAEMORRHAGE [None]
